FAERS Safety Report 25263970 (Version 1)
Quarter: 2025Q2

REPORT INFORMATION
  Report Type: Spontaneous
  Country: GB (occurrence: GB)
  Receive Date: 20250502
  Receipt Date: 20250502
  Transmission Date: 20250716
  Serious: Yes (Other)
  Sender: AUROBINDO
  Company Number: GB-MHRA-TPP3716998C16344779YC1744808315157

PATIENT
  Age: 84 Year
  Sex: Female
  Weight: 64 kg

DRUGS (18)
  1. PRAVASTATIN [Suspect]
     Active Substance: PRAVASTATIN
     Indication: Ill-defined disorder
     Route: 065
     Dates: start: 20250116
  2. ACETAMINOPHEN\CODEINE PHOSPHATE [Concomitant]
     Active Substance: ACETAMINOPHEN\CODEINE PHOSPHATE
     Indication: Ill-defined disorder
     Route: 065
     Dates: start: 20250127, end: 20250210
  3. AMOXICILLIN [Concomitant]
     Active Substance: AMOXICILLIN
     Indication: Ill-defined disorder
     Dosage: 1 DOSAGE FORM, 3 TIMES A DAY (TAKE ONE CAPSULE THREE TIMES A DAY FOR 5 DAYS, TO TREAT INFECTION)
     Route: 065
     Dates: start: 20250416
  4. PREDNISOLONE [Concomitant]
     Active Substance: PREDNISOLONE
     Indication: Ill-defined disorder
     Dosage: 6 DOSAGE FORM, ONCE A DAY (TAKE SIX TABLETS AS A SINGLE DOSE ONCE DAILY IN THE MORNING FOR 5 DAYS (T
     Route: 065
     Dates: start: 20250416
  5. Nacsys [Concomitant]
     Indication: Ill-defined disorder
     Route: 065
     Dates: start: 20250226, end: 20250328
  6. BECLOMETHASONE DIPROPIONATE\FORMOTEROL FUMARATE\GLYCOPYRROLATE [Concomitant]
     Active Substance: BECLOMETHASONE DIPROPIONATE\FORMOTEROL FUMARATE\GLYCOPYRROLATE
     Indication: Ill-defined disorder
     Route: 065
     Dates: start: 20250226
  7. PANTOPRAZOLE [Concomitant]
     Active Substance: PANTOPRAZOLE
     Indication: Ill-defined disorder
     Dosage: UNK UNK, TWO TIMES A DAY (TAKE ONE TWICE A DAY)
     Route: 065
     Dates: start: 20250321
  8. Simpla [Concomitant]
     Indication: Ill-defined disorder
     Route: 065
     Dates: start: 20230210
  9. Optilube active [Concomitant]
     Indication: Ill-defined disorder
     Route: 065
     Dates: start: 20230804
  10. TROSPIUM [Concomitant]
     Active Substance: TROSPIUM
     Indication: Ill-defined disorder
     Route: 065
     Dates: start: 20250116
  11. AMLODIPINE [Concomitant]
     Active Substance: AMLODIPINE BESYLATE
     Indication: Ill-defined disorder
     Route: 065
     Dates: start: 20250116
  12. Calci d [Concomitant]
     Indication: Ill-defined disorder
     Route: 065
     Dates: start: 20250116
  13. CLOPIDOGREL [Concomitant]
     Active Substance: CLOPIDOGREL BISULFATE
     Indication: Ill-defined disorder
     Dosage: UNK UNK, ONCE A DAY (TAKE ONE ONCE DAILY)
     Route: 065
     Dates: start: 20250116
  14. FERROUS SULFATE [Concomitant]
     Active Substance: FERROUS SULFATE
     Indication: Ill-defined disorder
     Dosage: UNK UNK, ONCE A DAY (TAKE ONE ONCE DAILY)
     Route: 065
     Dates: start: 20250116
  15. ISOSORBIDE MONONITRATE [Concomitant]
     Active Substance: ISOSORBIDE MONONITRATE
     Indication: Ill-defined disorder
     Dosage: UNK UNK, TWO TIMES A DAY (TAKE ONE TWICE DAILY(8AM AND 2PM))
     Route: 065
     Dates: start: 20250116
  16. METFORMIN [Concomitant]
     Active Substance: METFORMIN HYDROCHLORIDE
     Indication: Ill-defined disorder
     Dosage: UNK UNK, TWO TIMES A DAY (TWO TWICE A DAY)
     Route: 065
     Dates: start: 20250116
  17. PREGABALIN [Concomitant]
     Active Substance: PREGABALIN
     Indication: Ill-defined disorder
     Dosage: UNK UNK, 3 TIMES A DAY (TO BE TAKEN THREE TIMES DAILY)
     Route: 065
     Dates: start: 20250116
  18. RAMIPRIL [Concomitant]
     Active Substance: RAMIPRIL
     Indication: Ill-defined disorder
     Route: 065
     Dates: start: 20250116

REACTIONS (2)
  - Wheezing [Unknown]
  - Pruritus [Unknown]
